FAERS Safety Report 9311404 (Version 1)
Quarter: 2013Q2

REPORT INFORMATION
  Report Type: Spontaneous
  Country: US (occurrence: US)
  Receive Date: 20130528
  Receipt Date: 20130528
  Transmission Date: 20140414
  Serious: No
  Sender: FDA-Public Use
  Company Number: US-MYLANLABS-2013S1007779

PATIENT
  Sex: Female

DRUGS (1)
  1. PRAVASTATIN [Suspect]

REACTIONS (2)
  - Labelled drug-food interaction medication error [Not Recovered/Not Resolved]
  - Somnolence [Not Recovered/Not Resolved]
